FAERS Safety Report 19511465 (Version 3)
Quarter: 2023Q4

REPORT INFORMATION
  Report Type: Spontaneous
  Country: US (occurrence: US)
  Receive Date: 20210709
  Receipt Date: 20231218
  Transmission Date: 20240110
  Serious: Yes (Other)
  Sender: FDA-Public Use
  Company Number: US-AUROBINDO-AUR-APL-2021-028692

PATIENT
  Age: 33 Year
  Sex: Male

DRUGS (49)
  1. CHLORPROMAZINE HYDROCHLORIDE [Suspect]
     Active Substance: CHLORPROMAZINE HYDROCHLORIDE
     Indication: Agitation
     Dosage: 50 MILLIGRAM, FOUR TIMES/DAY AS NEEDED
     Route: 030
  2. CHLORPROMAZINE HYDROCHLORIDE [Suspect]
     Active Substance: CHLORPROMAZINE HYDROCHLORIDE
     Indication: Delirium
  3. CLONIDINE [Suspect]
     Active Substance: CLONIDINE
     Indication: Delirium
     Dosage: 0.1 MILLIGRAM AS NEEDED
     Route: 048
  4. CLONIDINE [Suspect]
     Active Substance: CLONIDINE
     Dosage: 0.1 MILLIGRAM, TWO TIMES A DAY
     Route: 065
  5. DIVALPROEX SODIUM [Suspect]
     Active Substance: DIVALPROEX SODIUM
     Indication: Mania
     Dosage: 500 MILLIGRAM, TWO TIMES A DAY
     Route: 042
  6. DIVALPROEX SODIUM [Suspect]
     Active Substance: DIVALPROEX SODIUM
     Indication: Delirium
     Dosage: 750 MILLIGRAM, TWO TIMES A DAY
     Route: 065
  7. DIVALPROEX SODIUM [Suspect]
     Active Substance: DIVALPROEX SODIUM
     Dosage: 1500 MILLIGRAM, DAILY
     Route: 065
  8. FLUOXETINE [Suspect]
     Active Substance: FLUOXETINE HYDROCHLORIDE
     Indication: Delirium
     Dosage: 40 MILLIGRAM, DAILY
     Route: 065
  9. GABAPENTIN [Suspect]
     Active Substance: GABAPENTIN
     Indication: Delirium
     Dosage: 400 MILLIGRAM, 3 TIMES A DAY
     Route: 065
  10. HYDROXYZINE [Suspect]
     Active Substance: HYDROXYZINE HYDROCHLORIDE
     Indication: Delirium
     Dosage: 50 MILLIGRAM AS NEEDED
     Route: 065
  11. LORAZEPAM [Suspect]
     Active Substance: LORAZEPAM
     Indication: Delirium
     Dosage: 2 MILLIGRAM NINE DOSES
     Route: 042
  12. LORAZEPAM [Suspect]
     Active Substance: LORAZEPAM
     Indication: Agitation
     Dosage: 4 MILLIGRAM, FOUR TIMES/DAY
     Route: 042
  13. LORAZEPAM [Suspect]
     Active Substance: LORAZEPAM
     Dosage: 3 MILLIGRAM, FOUR TIMES/DAY AS NEEDED
     Route: 042
  14. LORAZEPAM [Suspect]
     Active Substance: LORAZEPAM
     Dosage: 40 MILLIGRAM 9 TOTAL (NINE DOSES OF 2 MG INTRAVENOUS LORAZEPAM)
     Route: 042
  15. QUETIAPINE [Suspect]
     Active Substance: QUETIAPINE
     Indication: Delirium
     Dosage: 300 MILLIGRAM, ONCE A DAY (NIGHTLY)
     Route: 065
  16. QUETIAPINE [Suspect]
     Active Substance: QUETIAPINE
     Dosage: 50 MILLIGRAM, 3 TIMES A DAY
     Route: 048
  17. QUETIAPINE [Suspect]
     Active Substance: QUETIAPINE
     Dosage: 400 MILLIGRAM, TWO TIMES A DAY
     Route: 065
  18. QUETIAPINE [Suspect]
     Active Substance: QUETIAPINE
     Dosage: 200 MILLIGRAM, DAILY
     Route: 065
  19. QUETIAPINE [Suspect]
     Active Substance: QUETIAPINE
     Dosage: 600 MILLIGRAM, ONCE A DAY (NIGHTLY)
     Route: 065
  20. RISPERIDONE [Suspect]
     Active Substance: RISPERIDONE
     Indication: Delirium
     Dosage: 2 MILLIGRAM, TWO TIMES A DAY
     Route: 065
  21. RISPERIDONE [Suspect]
     Active Substance: RISPERIDONE
     Indication: Aggression
  22. RISPERIDONE [Suspect]
     Active Substance: RISPERIDONE
     Indication: Agitation
  23. ZIPRASIDONE HYDROCHLORIDE [Suspect]
     Active Substance: ZIPRASIDONE HYDROCHLORIDE
     Indication: Delirium
     Dosage: 20 MILLIGRAM
     Route: 065
  24. BENZTROPINE [Suspect]
     Active Substance: BENZTROPINE
     Indication: Delirium
     Dosage: 2 MILLIGRAM, TWO TIMES A DAY
     Route: 065
  25. BUPRENORPHINE [Suspect]
     Active Substance: BUPRENORPHINE
     Indication: Delirium
     Dosage: 8 MILLIGRAM, DAILY
     Route: 065
  26. BUPRENORPHINE [Suspect]
     Active Substance: BUPRENORPHINE
     Indication: Drug dependence
     Dosage: 4 MILLIGRAM, TWO TIMES A DAY
     Route: 065
  27. BUPRENORPHINE [Suspect]
     Active Substance: BUPRENORPHINE
     Indication: Prophylaxis
     Dosage: 2 MILLIGRAM, TWO TIMES A DAY
     Route: 065
  28. CARBAMAZEPINE [Suspect]
     Active Substance: CARBAMAZEPINE
     Indication: Delirium
     Dosage: 200 MILLIGRAM, DAILY
     Route: 065
  29. CHLORDIAZEPOXIDE [Suspect]
     Active Substance: CHLORDIAZEPOXIDE
     Indication: Delirium
     Dosage: 25 MILLIGRAM AS NEEDED
     Route: 065
  30. DIAZEPAM [Suspect]
     Active Substance: DIAZEPAM
     Indication: Delirium
     Dosage: 10 MILLIGRAM TOTAL (WO DOSES)
     Route: 042
  31. DIAZEPAM [Suspect]
     Active Substance: DIAZEPAM
     Indication: Agitation
     Dosage: THREE DOSES OF 10 MG AND TWO DOSES OF 5 MG
     Route: 042
  32. DIAZEPAM [Suspect]
     Active Substance: DIAZEPAM
     Dosage: 30 MILLIGRAM TOTAL (THREE DOSES)
     Route: 042
  33. ALPRAZOLAM [Concomitant]
     Active Substance: ALPRAZOLAM
     Indication: Product used for unknown indication
     Dosage: 4?14 MG DAILY
     Route: 065
  34. DEXMEDETOMIDINE [Concomitant]
     Active Substance: DEXMEDETOMIDINE
     Indication: Sedation
     Dosage: UNK
     Route: 065
  35. FOLIC ACID [Concomitant]
     Active Substance: FOLIC ACID
     Indication: Product used for unknown indication
     Dosage: UNK
     Route: 065
  36. THIAMINE [Concomitant]
     Active Substance: THIAMINE
     Indication: Product used for unknown indication
     Dosage: UNK
     Route: 042
  37. VALPROATE [Concomitant]
     Active Substance: VALPROIC ACID
     Indication: Product used for unknown indication
     Dosage: 500 MILLIGRAM, TWO TIMES A DAY
     Route: 042
  38. VALPROATE [Concomitant]
     Active Substance: VALPROIC ACID
     Dosage: 750 MILLIGRAM, TWO TIMES A DAY
     Route: 042
  39. VANCOMYCIN [Concomitant]
     Active Substance: VANCOMYCIN
     Indication: Abscess
     Dosage: UNK
     Route: 042
  40. CLONIDINE [Concomitant]
     Active Substance: CLONIDINE
     Indication: Product used for unknown indication
     Dosage: 0.1 MILLIGRAM, AS NECESSARY
     Route: 042
  41. DIAZEPAM [Concomitant]
     Active Substance: DIAZEPAM
     Indication: Agitation
     Dosage: 30 MILLIGRAM, TOTAL,THREE DOSES
     Route: 042
  42. DIAZEPAM [Concomitant]
     Active Substance: DIAZEPAM
     Dosage: 30 MILLIGRAM, TOTAL,TWO DOSES
     Route: 042
  43. LORAZEPAM [Concomitant]
     Active Substance: LORAZEPAM
     Indication: Agitation
     Dosage: 3 MILLIGRAM, AS NECESSARY
     Route: 042
  44. LORAZEPAM [Concomitant]
     Active Substance: LORAZEPAM
     Dosage: 40 MILLIGRAM,TOTAL,NINE DOSES OF 2 MG INTRAVENOUS LORAZEPAM
     Route: 042
  45. LORAZEPAM [Concomitant]
     Active Substance: LORAZEPAM
     Dosage: 40 MILLIGRAM, 6HOURS
     Route: 042
  46. FLUOXETINE [Concomitant]
     Active Substance: FLUOXETINE HYDROCHLORIDE
     Indication: Product used for unknown indication
     Dosage: 40 MILLIGRAM
     Route: 065
  47. BENZTROPINE [Concomitant]
     Active Substance: BENZTROPINE
     Indication: Product used for unknown indication
     Dosage: 2 MILLIGRAM, TWO TIMES A DAY
     Route: 065
  48. GABAPENTIN [Concomitant]
     Active Substance: GABAPENTIN
     Indication: Product used for unknown indication
     Dosage: 400 MILLIGRAM, 3 TIMES A DAY
     Route: 065
  49. HYDROXYZINE [Concomitant]
     Active Substance: HYDROXYZINE HYDROCHLORIDE
     Indication: Product used for unknown indication
     Dosage: 50 MILLIGRAM, AS NECESSARY
     Route: 065

REACTIONS (4)
  - Drug ineffective [Unknown]
  - Lethargy [Recovering/Resolving]
  - Condition aggravated [Recovering/Resolving]
  - Hypophagia [Unknown]
